FAERS Safety Report 10997640 (Version 1)
Quarter: 2015Q2

REPORT INFORMATION
  Report Type: Spontaneous
  Country: US (occurrence: None)
  Receive Date: 20150406
  Receipt Date: 20150406
  Transmission Date: 20150821
  Serious: Yes (Other)
  Sender: FDA-Public Use
  Company Number: US-TORRENT-00000916

PATIENT
  Sex: Male

DRUGS (2)
  1. LOSARTAN POTASSIUM (LOSARTAN POTASSIUM) [Suspect]
     Active Substance: LOSARTAN POTASSIUM
     Indication: HYPERTENSION
  2. LOSARTAN POTASSIUM (LOSARTAN POTASSIUM) [Suspect]
     Active Substance: LOSARTAN POTASSIUM
     Indication: HYPERTENSION
     Dosage: 2 TABLETS DAILY

REACTIONS (2)
  - Product substitution issue [None]
  - Blood pressure increased [None]
